FAERS Safety Report 7530029-6 (Version None)
Quarter: 2011Q2

REPORT INFORMATION
  Report Type: 
  Country: None (occurrence: None)
  Receive Date: 20110607
  Receipt Date: 20110527
  Transmission Date: 20111010
  Serious: Yes (Hospitalization)
  Sender: FDA-Public Use
  Company Number: PHHO2011GB08431

PATIENT
  Sex: Male
  Weight: 82.9 kg

DRUGS (4)
  1. ZOLEDRONIC ACID [Suspect]
     Indication: METASTASES TO BONE
     Dosage: 4 MG, UNK
     Dates: start: 20100524, end: 20110430
  2. DOCETAXEL [Concomitant]
     Indication: METASTASES TO BONE
     Dosage: 150 MG, UNK
     Dates: start: 20100524, end: 20110126
  3. PREDNISOLONE [Concomitant]
     Indication: METASTASES TO BONE
     Dosage: 5 MG, UNK
     Dates: start: 20100524, end: 20110126
  4. STRONTIUM [Concomitant]
     Indication: METASTASES TO BONE
     Dosage: UNK
     Dates: start: 20101007

REACTIONS (1)
  - ABSCESS JAW [None]
